FAERS Safety Report 5304487-1 (Version None)
Quarter: 2007Q2

REPORT INFORMATION
  Report Type: 
  Country: None (occurrence: None)
  Receive Date: 20070417
  Receipt Date: 20070417
  Transmission Date: 20071010
  Serious: Yes (Other)
  Sender: FDA-Public Use
  Company Number: None

PATIENT
  Age: 37 Year
  Sex: Female
  Weight: 77.11 kg

DRUGS (2)
  1. ZOLOFT [Suspect]
     Indication: MAJOR DEPRESSION
     Dosage: 50 MG ONC DAILY ORAL
     Route: 048
     Dates: start: 20061102
  2. ZOLOFT [Suspect]
     Indication: MAJOR DEPRESSION
     Dosage: 50 MG ONC DAILY ORAL
     Route: 048
     Dates: start: 20061214

REACTIONS (3)
  - DIZZINESS [None]
  - HEADACHE [None]
  - PHARMACEUTICAL PRODUCT COMPLAINT [None]
